FAERS Safety Report 4319207-7 (Version None)
Quarter: 2004Q1

REPORT INFORMATION
  Report Type: 
  Country: None (occurrence: None)
  Receive Date: 20040316
  Receipt Date: 20040303
  Transmission Date: 20041129
  Serious: Yes (Death, Other)
  Sender: FDA-Public Use
  Company Number: JP-JNJFOC-20030700876

PATIENT
  Age: 67 Year
  Sex: Male

DRUGS (11)
  1. FENTANYL [Suspect]
     Indication: CANCER PAIN
     Dosage: SEE IMAGE
     Route: 062
     Dates: start: 20030326, end: 20030329
  2. FENTANYL [Suspect]
     Indication: CANCER PAIN
     Dosage: SEE IMAGE
     Route: 062
     Dates: start: 20030329, end: 20030404
  3. FENTANYL [Suspect]
     Indication: CANCER PAIN
     Dosage: SEE IMAGE
     Route: 062
     Dates: start: 20030404, end: 20030420
  4. DICLOFENAC SODIUM [Concomitant]
     Route: 054
  5. PROCHLORPERAZINE MALEATE [Concomitant]
     Route: 048
  6. MORPHINE [Concomitant]
     Route: 048
  7. ALENDRONATE SODIUM HYDRATE       (ALENDRONATE SODIUM) [Concomitant]
  8. KETOPROFEN (KETOPROFEN) SUPPOSITORY [Concomitant]
     Route: 054
  9. PROCHLORPERAZINE (PROCHLORPERAZINE) INJECTION [Concomitant]
     Route: 030
  10. METOCLOPRAMIDE [Concomitant]
     Route: 042
  11. TIENAM (TIENAM) INJECTION [Concomitant]
     Route: 042

REACTIONS (10)
  - ASPARTATE AMINOTRANSFERASE INCREASED [None]
  - BLOOD ALKALINE PHOSPHATASE INCREASED [None]
  - BLOOD POTASSIUM INCREASED [None]
  - BLOOD SODIUM DECREASED [None]
  - BLOOD UREA INCREASED [None]
  - C-REACTIVE PROTEIN INCREASED [None]
  - CONDITION AGGRAVATED [None]
  - MALIGNANT NEOPLASM OF RENAL PELVIS [None]
  - SEPSIS [None]
  - URINARY TRACT INFECTION [None]
